FAERS Safety Report 9304030 (Version 1)
Quarter: 2013Q2

REPORT INFORMATION
  Report Type: Report from Study
  Country: NL (occurrence: NL)
  Receive Date: 20130522
  Receipt Date: 20130522
  Transmission Date: 20140414
  Serious: Yes (Hospitalization, Other)
  Sender: FDA-Public Use
  Company Number: PHHO2013NL006583

PATIENT
  Age: 39 Year
  Sex: Female
  Weight: 74 kg

DRUGS (3)
  1. MYCOPHENOLIC ACID [Suspect]
     Indication: STEM CELL TRANSPLANT
     Dosage: 2160 MG, UNK
     Route: 048
     Dates: start: 20120524, end: 20120830
  2. SANDIMMUN [Suspect]
     Indication: STEM CELL TRANSPLANT
     Dosage: 400 MG, UNK
     Route: 048
     Dates: start: 20120521, end: 20120820
  3. SANDIMMUN [Suspect]
     Dosage: 300 MG, UNK
     Route: 048
     Dates: start: 20120821, end: 20120821

REACTIONS (5)
  - Thrombotic thrombocytopenic purpura [Unknown]
  - Haemolytic uraemic syndrome [Unknown]
  - Cytomegalovirus infection [Recovered/Resolved]
  - Renal failure [Unknown]
  - Haemolytic anaemia [Unknown]
